FAERS Safety Report 4281805-7 (Version None)
Quarter: 2004Q1

REPORT INFORMATION
  Report Type: 
  Country: None (occurrence: None)
  Receive Date: 20040129
  Receipt Date: 20040129
  Transmission Date: 20041129
  Serious: Yes (Other)
  Sender: FDA-Public Use
  Company Number: None

PATIENT
  Age: 41 Year
  Sex: Female
  Weight: 62.5964 kg

DRUGS (6)
  1. PAXIL [Suspect]
     Indication: ANXIETY
     Dosage: ONCE A DAY ORAL
     Route: 048
     Dates: start: 20010928, end: 20031130
  2. PAXIL [Suspect]
     Indication: DEPRESSION
     Dosage: ONCE A DAY ORAL
     Route: 048
     Dates: start: 20010928, end: 20031130
  3. PAXIL [Suspect]
     Indication: OBSESSIVE-COMPULSIVE DISORDER
     Dosage: ONCE A DAY ORAL
     Route: 048
     Dates: start: 20010928, end: 20031130
  4. PAXIL [Suspect]
     Indication: ANXIETY
     Dosage: ONCE A DAY ORAL
     Route: 048
     Dates: start: 20031201, end: 20040125
  5. PAXIL [Suspect]
     Indication: DEPRESSION
     Dosage: ONCE A DAY ORAL
     Route: 048
     Dates: start: 20031201, end: 20040125
  6. PAXIL [Suspect]
     Indication: OBSESSIVE-COMPULSIVE DISORDER
     Dosage: ONCE A DAY ORAL
     Route: 048
     Dates: start: 20031201, end: 20040125

REACTIONS (9)
  - ABNORMAL DREAMS [None]
  - DIZZINESS [None]
  - DRUG DEPENDENCE [None]
  - FEELING ABNORMAL [None]
  - HYPOAESTHESIA [None]
  - NIGHTMARE [None]
  - PARAESTHESIA [None]
  - SLEEP DISORDER [None]
  - VISUAL DISTURBANCE [None]
